FAERS Safety Report 5668133-X (Version None)
Quarter: 2008Q1

REPORT INFORMATION
  Report Type: 
  Country: None (occurrence: None)
  Receive Date: 20080315
  Receipt Date: 20080213
  Transmission Date: 20080703
  Serious: No
  Sender: FDA-Public Use
  Company Number: US-ABBOTT-08P-163-0438554-00

PATIENT
  Sex: Female
  Weight: 93 kg

DRUGS (3)
  1. HUMIRA [Suspect]
     Indication: POLYARTHRITIS
     Dosage: FOR 4 WEEKS
     Route: 058
     Dates: start: 20080131
  2. HUMIRA [Suspect]
     Route: 058
  3. PREDNISONE [Concomitant]
     Indication: POLYARTHRITIS
     Dosage: IN THE MORNING
     Route: 048
     Dates: start: 20080213

REACTIONS (1)
  - LIP SWELLING [None]
